FAERS Safety Report 15320501 (Version 1)
Quarter: 2018Q3

REPORT INFORMATION
  Report Type: Other
  Country: US (occurrence: US)
  Receive Date: 20180827
  Receipt Date: 20180827
  Transmission Date: 20181010
  Serious: Yes (Hospitalization)
  Sender: FDA-Public Use
  Company Number: US-ACORDA-ACO_149935_2018

PATIENT
  Age: 56 Year
  Sex: Female
  Weight: 63.49 kg

DRUGS (5)
  1. BACLOFEN. [Concomitant]
     Active Substance: BACLOFEN
     Indication: PRODUCT USED FOR UNKNOWN INDICATION
     Dosage: 10 MG, UNK
     Route: 048
     Dates: start: 1997
  2. COPAXONE [Concomitant]
     Active Substance: GLATIRAMER ACETATE
     Indication: PRODUCT USED FOR UNKNOWN INDICATION
     Dosage: 20 MG, QD
     Route: 030
     Dates: start: 2011
  3. AMPYRA [Suspect]
     Active Substance: DALFAMPRIDINE
     Indication: MULTIPLE SCLEROSIS
     Dosage: 10 MG, BID (Q12H)
     Route: 048
     Dates: start: 20180425, end: 20180716
  4. GABAPENTIN. [Concomitant]
     Active Substance: GABAPENTIN
     Indication: PRODUCT USED FOR UNKNOWN INDICATION
     Dosage: 100 MG, QD
     Route: 048
     Dates: start: 2011
  5. AMPYRA [Suspect]
     Active Substance: DALFAMPRIDINE
     Indication: GAIT DISTURBANCE
     Dosage: 10 MG, QD
     Route: 048
     Dates: start: 20180719, end: 20180720

REACTIONS (14)
  - Ill-defined disorder [Recovered/Resolved]
  - Fatigue [Unknown]
  - Paraesthesia [Not Recovered/Not Resolved]
  - Hypoaesthesia [Recovering/Resolving]
  - Extra dose administered [Unknown]
  - Therapy cessation [Unknown]
  - Pyrexia [Recovering/Resolving]
  - Post procedural discomfort [Unknown]
  - Condition aggravated [Unknown]
  - Feeling abnormal [Not Recovered/Not Resolved]
  - Movement disorder [Recovering/Resolving]
  - Pain [Unknown]
  - Asthenia [Not Recovered/Not Resolved]
  - Inappropriate schedule of drug administration [Unknown]

NARRATIVE: CASE EVENT DATE: 201805
